FAERS Safety Report 13044891 (Version 1)
Quarter: 2016Q4

REPORT INFORMATION
  Report Type: Report from Study
  Country: None (occurrence: US)
  Receive Date: 20161220
  Receipt Date: 20161220
  Transmission Date: 20170207
  Serious: No
  Sender: FDA-Public Use
  Company Number: US-BIOVITRUM-2015US0485

PATIENT
  Age: 72 Year
  Sex: Male
  Weight: 94.89 kg

DRUGS (6)
  1. DIGOXIN. [Concomitant]
     Active Substance: DIGOXIN
  2. INSULIN [Concomitant]
     Active Substance: INSULIN NOS
  3. KINERET [Suspect]
     Active Substance: ANAKINRA
     Indication: RHEUMATOID ARTHRITIS
     Route: 058
     Dates: start: 20150718, end: 201508
  4. COUMADIN [Concomitant]
     Active Substance: WARFARIN SODIUM
  5. PREDNISONE. [Concomitant]
     Active Substance: PREDNISONE
  6. BACTRIM [Concomitant]
     Active Substance: SULFAMETHOXAZOLE\TRIMETHOPRIM

REACTIONS (5)
  - Injection site reaction [Not Recovered/Not Resolved]
  - Injection site urticaria [Not Recovered/Not Resolved]
  - Drug hypersensitivity [Unknown]
  - Product quality issue [Unknown]
  - Injection site pain [Unknown]

NARRATIVE: CASE EVENT DATE: 201508
